FAERS Safety Report 5162004-3 (Version None)
Quarter: 2006Q4

REPORT INFORMATION
  Report Type: 
  Country: None (occurrence: None)
  Receive Date: 20061121
  Receipt Date: 20061110
  Transmission Date: 20070319
  Serious: Yes (Life-Threatening)
  Sender: FDA-Public Use
  Company Number: 2006-289

PATIENT
  Age: 83 Year
  Sex: Female
  Weight: 61 kg

DRUGS (5)
  1. CARBOPLATIN [Suspect]
     Indication: OVARIAN CANCER
     Dosage: 250MG PER DAY, IV
     Route: 042
     Dates: start: 20061020, end: 20061020
  2. DEXAMETHASONE [Concomitant]
  3. PIRITON [Concomitant]
  4. RANITIDINE [Concomitant]
  5. ANTIEMETICS [Concomitant]

REACTIONS (1)
  - RASH PRURITIC [None]
